FAERS Safety Report 7575111-2 (Version None)
Quarter: 2011Q2

REPORT INFORMATION
  Report Type: 
  Country: None (occurrence: None)
  Receive Date: 20110627
  Receipt Date: 20110622
  Transmission Date: 20111010
  Serious: Yes (Hospitalization, Other)
  Sender: FDA-Public Use
  Company Number: US-PFIZER INC-2011044398

PATIENT
  Sex: Male

DRUGS (12)
  1. VISTARIL [Concomitant]
     Indication: ANXIETY
     Dosage: UNK
     Dates: start: 20070822
  2. KETOROLAC TROMETHAMINE [Concomitant]
     Indication: CONJUNCTIVITIS
     Dosage: UNK
     Dates: start: 20090206, end: 20090301
  3. XALATAN [Concomitant]
     Dosage: UNK
     Dates: start: 20090212, end: 20090601
  4. ZOLPIDEM [Concomitant]
     Indication: INSOMNIA
     Dosage: UNK
     Dates: start: 20090108, end: 20090308
  5. TRAZODONE [Concomitant]
     Indication: DEPRESSION
     Dosage: UNK
     Dates: start: 20061129
  6. CHANTIX [Suspect]
     Indication: SMOKING CESSATION THERAPY
     Dosage: 1 MG, UNK
     Dates: start: 20090205, end: 20090220
  7. PAROXETINE [Concomitant]
     Indication: DEPRESSION
     Dosage: UNK
     Dates: start: 20060901
  8. DIPHENOXYLATE [Concomitant]
     Indication: DIARRHOEA
     Dosage: UNK
     Dates: start: 20061129
  9. CHLORTHALIDONE [Concomitant]
     Indication: HYPERTENSION
     Dosage: UNK
     Dates: start: 20090108, end: 20090308
  10. PRILOSEC [Concomitant]
     Indication: GASTROOESOPHAGEAL REFLUX DISEASE
     Dosage: UNK
     Dates: start: 20071008
  11. HYDROCHLOROTHIAZIDE [Concomitant]
     Indication: HYPERTENSION
     Dosage: UNK
     Dates: start: 20070822
  12. LISINOPRIL [Concomitant]
     Indication: HYPERTENSION
     Dosage: UNK
     Dates: start: 20080827

REACTIONS (8)
  - ANXIETY [None]
  - EMOTIONAL DISTRESS [None]
  - SUICIDAL IDEATION [None]
  - ABNORMAL BEHAVIOUR [None]
  - AGGRESSION [None]
  - IMPAIRED DRIVING ABILITY [None]
  - DEPRESSION [None]
  - MENTAL DISORDER [None]
